FAERS Safety Report 12353008 (Version 1)
Quarter: 2016Q2

REPORT INFORMATION
  Report Type: Spontaneous
  Country: FR (occurrence: FR)
  Receive Date: 20160510
  Receipt Date: 20160510
  Transmission Date: 20160815
  Serious: Yes (Other)
  Sender: FDA-Public Use
  Company Number: FR-ASTRAZENECA-2016SE48781

PATIENT
  Age: 826 Month
  Sex: Male

DRUGS (6)
  1. EFFIENT [Concomitant]
     Active Substance: PRASUGREL HYDROCHLORIDE
     Dates: start: 201510
  2. INEXIUM [Suspect]
     Active Substance: ESOMEPRAZOLE
     Indication: ABDOMINAL PAIN UPPER
     Route: 048
     Dates: start: 20151125, end: 20151210
  3. RAMIPRIL. [Suspect]
     Active Substance: RAMIPRIL
     Dates: start: 201510, end: 20151218
  4. KARDEGIC [Concomitant]
     Active Substance: ASPIRIN LYSINE
     Dates: start: 201510
  5. TAHOR [Concomitant]
     Active Substance: ATORVASTATIN CALCIUM
     Dates: start: 201510
  6. BISOPROLOL [Concomitant]
     Active Substance: BISOPROLOL
     Dosage: 1.25, UNKNOWN
     Dates: start: 201510

REACTIONS (7)
  - Pyrexia [Recovered/Resolved]
  - Hepatocellular injury [Unknown]
  - Eosinophilia [Recovered/Resolved]
  - Cholecystitis [Recovered/Resolved]
  - Cholestasis [Recovering/Resolving]
  - Weight decreased [Recovering/Resolving]
  - Arthralgia [Recovered/Resolved]

NARRATIVE: CASE EVENT DATE: 201512
